FAERS Safety Report 8216449-5 (Version None)
Quarter: 2012Q1

REPORT INFORMATION
  Report Type: 
  Country: None (occurrence: None)
  Receive Date: 20120316
  Receipt Date: 20120306
  Transmission Date: 20120608
  Serious: Yes (Hospitalization)
  Sender: FDA-Public Use
  Company Number: JP-UCBSA-052980

PATIENT
  Age: 14 Year
  Sex: Female

DRUGS (4)
  1. LAMICTAL [Concomitant]
     Dosage: UNKNOWN DOSE
     Route: 048
  2. OSPOLOT [Concomitant]
     Dosage: UNKNOWN DOSE
     Route: 048
  3. KEPPRA [Suspect]
     Indication: GRAND MAL CONVULSION
     Route: 048
     Dates: start: 20120228, end: 20120301
  4. VALPROATE SODIUM [Concomitant]
     Dosage: UNKNOWN DOSE
     Route: 048

REACTIONS (2)
  - GRAND MAL CONVULSION [None]
  - SEIZURE CLUSTER [None]
